FAERS Safety Report 6581267-0 (Version None)
Quarter: 2010Q1

REPORT INFORMATION
  Report Type: 
  Country: None (occurrence: None)
  Receive Date: 20100215
  Receipt Date: 20100205
  Transmission Date: 20100710
  Serious: Yes (Other)
  Sender: FDA-Public Use
  Company Number: FR-TEVA-223663USA

PATIENT
  Sex: Female

DRUGS (6)
  1. PIMOZIDE TABLETS [Suspect]
  2. PAROXETINE HYDROCHLORIDE [Interacting]
  3. CYAMEMAZINE [Concomitant]
  4. VENLAFAXINE [Concomitant]
  5. LOXAPINE [Concomitant]
  6. TIAPRIDE [Concomitant]

REACTIONS (4)
  - CONTRAINDICATION TO MEDICAL TREATMENT [None]
  - DRUG INTERACTION [None]
  - ELECTROCARDIOGRAM QT PROLONGED [None]
  - ELECTROCARDIOGRAM REPOLARISATION ABNORMALITY [None]
